FAERS Safety Report 8543452-8 (Version None)
Quarter: 2012Q3

REPORT INFORMATION
  Report Type: 
  Country: None (occurrence: None)
  Receive Date: 20120727
  Receipt Date: 20120724
  Transmission Date: 20120928
  Serious: Yes (Hospitalization)
  Sender: FDA-Public Use
  Company Number: BR-PFIZER INC-2012179687

PATIENT
  Age: 37 Year
  Sex: Male
  Weight: 83 kg

DRUGS (3)
  1. GABAPENTIN [Concomitant]
     Indication: SPINAL PAIN
     Dosage: 1 TABLET TWICE DAILY
  2. LYRICA [Suspect]
     Indication: BACK PAIN
     Dosage: 75 MG, 3X/DAY
     Route: 048
     Dates: start: 20100101
  3. CELEBREX [Suspect]
     Indication: SPINAL PAIN
     Dosage: 200 MG, 3X/DAY
     Route: 048
     Dates: start: 20090101, end: 20100101

REACTIONS (3)
  - SPINAL DISORDER [None]
  - DRUG EFFECT DECREASED [None]
  - INTERVERTEBRAL DISC PROTRUSION [None]
